FAERS Safety Report 7050928-1 (Version None)
Quarter: 2010Q4

REPORT INFORMATION
  Report Type: 
  Country: None (occurrence: None)
  Receive Date: 20101019
  Receipt Date: 20101005
  Transmission Date: 20110411
  Serious: Yes (Hospitalization)
  Sender: FDA-Public Use
  Company Number: DE-RANBAXY-2009RR-22260

PATIENT
  Age: 74 Year
  Sex: Male
  Weight: 70 kg

DRUGS (9)
  1. IBUPROFEN [Suspect]
     Indication: GOUTY ARTHRITIS
     Dosage: 400 MG, QD
     Route: 048
     Dates: start: 20080901, end: 20081029
  2. FALITHROM [Suspect]
     Indication: AORTIC VALVE REPLACEMENT
     Dosage: 1.5 MG, QD
     Route: 048
     Dates: start: 20010101, end: 20081031
  3. ALLOPURINOL [Concomitant]
     Indication: HYPERURICAEMIA
     Dosage: 100 MG, QD
     Route: 048
     Dates: start: 20080501
  4. AMITRIPTYLINE [Concomitant]
     Indication: DEPRESSION
     Dosage: 25 MG, QD
     Route: 048
     Dates: start: 19850101
  5. DIGIMERCK PICO [Concomitant]
     Indication: ATRIAL FIBRILLATION
     Dosage: 0.05 MG, QD
     Route: 048
     Dates: start: 20060301
  6. DIOVAN [Concomitant]
     Indication: HYPERTENSION
     Dosage: 160 MG, QD
     Route: 048
     Dates: start: 20020101
  7. METOPROLOL SUCC [Concomitant]
     Indication: TACHYCARDIA
     Dosage: 47.5 MG, BID
     Route: 048
     Dates: start: 20000101
  8. OMEP [Concomitant]
     Indication: PROPHYLAXIS AGAINST GASTROINTESTINAL ULCER
     Dosage: 20 MG, QD
     Route: 048
     Dates: start: 20040101, end: 20081031
  9. SIMVASTATIN [Concomitant]
     Indication: HYPERCHOLESTEROLAEMIA
     Dosage: 30 MG, QD
     Route: 048
     Dates: start: 20040101

REACTIONS (2)
  - DRUG INTERACTION [None]
  - GASTROINTESTINAL HAEMORRHAGE [None]
